FAERS Safety Report 12467970 (Version 1)
Quarter: 2016Q2

REPORT INFORMATION
  Report Type: Spontaneous
  Country: BR (occurrence: BR)
  Receive Date: 20160615
  Receipt Date: 20160615
  Transmission Date: 20160815
  Serious: Yes (Other)
  Sender: FDA-Public Use
  Company Number: BR-PFIZER INC-2016291331

PATIENT
  Age: 51 Year
  Sex: Male
  Weight: 80 kg

DRUGS (6)
  1. LORAX [Suspect]
     Active Substance: LORAZEPAM
     Indication: AGITATION
  2. LORAX [Suspect]
     Active Substance: LORAZEPAM
     Indication: AGGRESSION
  3. DIPIRONA [Concomitant]
     Active Substance: METAMIZOLE
     Indication: HEADACHE
     Dosage: 40 DROPS, UNK
     Route: 048
  4. DORFLEX [Concomitant]
     Active Substance: CAFFEINE\DIPYRONE\ORPHENADRINE
     Indication: HEADACHE
     Dosage: 1 TABLET, DAILY
     Route: 048
  5. LORAX [Suspect]
     Active Substance: LORAZEPAM
     Indication: ANXIETY
     Dosage: 2 MG, DAILY
     Route: 048
     Dates: start: 20151027, end: 20151227
  6. PARACETAMOL [Concomitant]
     Active Substance: ACETAMINOPHEN
     Indication: HEADACHE
     Dosage: 1 TABLET, DAILY

REACTIONS (5)
  - Blood alcohol increased [Unknown]
  - Seizure [Unknown]
  - Road traffic accident [Unknown]
  - Metastases to central nervous system [Unknown]
  - Nasal cavity cancer [Unknown]

NARRATIVE: CASE EVENT DATE: 20151123
